FAERS Safety Report 7671648-6 (Version None)
Quarter: 2011Q3

REPORT INFORMATION
  Report Type: 
  Country: None (occurrence: None)
  Receive Date: 20110809
  Receipt Date: 20100831
  Transmission Date: 20111222
  Serious: Yes (Hospitalization)
  Sender: FDA-Public Use
  Company Number: US-BAYER-201021283NA

PATIENT
  Age: 54 Year
  Sex: Female

DRUGS (22)
  1. INDERAL [Concomitant]
  2. METHOTREXATE [Concomitant]
     Dosage: WAS TO STOP MEDICATION
  3. SOLU-MEDROL [Suspect]
     Indication: MULTIPLE SCLEROSIS
     Dosage: HIGH DOSE
     Route: 042
  4. CORTICOSTEROID NOS [Concomitant]
     Dosage: HIGH DOSE
     Route: 042
     Dates: start: 20100401
  5. AMARYL [Concomitant]
     Dosage: WITH MEAL
     Route: 048
  6. VITAMIN D [Concomitant]
     Dosage: EVERY 7 DAYS
     Route: 048
  7. PRAVACHOL [Concomitant]
     Dosage: 2 TABLETS
  8. LORTAB [Concomitant]
     Dosage: 10-500 ONE EVERY 4 TO 6 HOURS
  9. BETASERON [Suspect]
     Dosage: BETAJECT
     Route: 058
     Dates: start: 20100330
  10. VITAMIN B COMPLEX WITH C [Concomitant]
  11. HYZAAR [Concomitant]
     Dosage: 50/12.5
  12. GABAPENTIN [Concomitant]
  13. INSULIN B [Concomitant]
     Dosage: SLIDING SCALES
  14. ZANAFLEX [Concomitant]
     Dosage: PRN
  15. BETASERON [Suspect]
     Indication: RELAPSING-REMITTING MULTIPLE SCLEROSIS
     Route: 058
     Dates: start: 20000214, end: 20040101
  16. BETASERON [Suspect]
     Dosage: BETAJECT - AS USED DOSE: UNK
     Route: 058
     Dates: end: 20100429
  17. FOLBEE [CYANOCOBALAMIN,FOLIC ACID,PYRIDOXINE HYDROCHLORIDE] [Concomitant]
  18. ZANTAC [Concomitant]
     Route: 048
  19. CELEXA [Concomitant]
  20. SYNTHROID [Concomitant]
  21. XANAX [Concomitant]
  22. PHENERGAN HCL [Concomitant]
     Dosage: EVERY 6 HOURS P.R.N.

REACTIONS (30)
  - HYPOPHAGIA [None]
  - POSTERIOR REVERSIBLE ENCEPHALOPATHY SYNDROME [None]
  - LETHARGY [None]
  - MENTAL STATUS CHANGES [None]
  - HERPES ZOSTER [None]
  - ABNORMAL BEHAVIOUR [None]
  - CARDIAC FAILURE CONGESTIVE [None]
  - HALLUCINATIONS, MIXED [None]
  - AMNESIA [None]
  - FATIGUE [None]
  - DEHYDRATION [None]
  - HEAD INJURY [None]
  - MULTIPLE SCLEROSIS RELAPSE [None]
  - HYPERTENSIVE EMERGENCY [None]
  - EUPHORIC MOOD [None]
  - SOMNOLENCE [None]
  - CONFUSIONAL STATE [None]
  - PYREXIA [None]
  - DIASTOLIC DYSFUNCTION [None]
  - MUSCULAR WEAKNESS [None]
  - RENAL FAILURE ACUTE [None]
  - JOINT INJURY [None]
  - HEADACHE [None]
  - URINARY TRACT INFECTION [None]
  - DECUBITUS ULCER [None]
  - PAIN [None]
  - FALL [None]
  - CONVULSION [None]
  - CONJUNCTIVITIS [None]
  - LIMB DISCOMFORT [None]
